FAERS Safety Report 17006709 (Version 1)
Quarter: 2019Q4

REPORT INFORMATION
  Report Type: Report from Study
  Country: BR (occurrence: BR)
  Receive Date: 20191107
  Receipt Date: 20191107
  Transmission Date: 20200122
  Serious: Yes (Other)
  Sender: FDA-Public Use
  Company Number: BR-JNJFOC-20191101531

PATIENT
  Age: 78 Year
  Sex: Male
  Weight: 62 kg

DRUGS (2)
  1. INFLIXIMAB, RECOMBINANT [Suspect]
     Active Substance: INFLIXIMAB
     Indication: RHEUMATOID ARTHRITIS
     Route: 042
     Dates: start: 20160301, end: 201905
  2. REMICADE [Suspect]
     Active Substance: INFLIXIMAB
     Indication: RHEUMATOID ARTHRITIS
     Route: 042
     Dates: start: 20160301, end: 201905

REACTIONS (1)
  - Bladder cancer [Recovering/Resolving]

NARRATIVE: CASE EVENT DATE: 201802
